FAERS Safety Report 7396435-8 (Version None)
Quarter: 2011Q2

REPORT INFORMATION
  Report Type: 
  Country: None (occurrence: None)
  Receive Date: 20110406
  Receipt Date: 20110304
  Transmission Date: 20111010
  Serious: Yes (Hospitalization)
  Sender: FDA-Public Use
  Company Number: US-BAYER-2010-003155

PATIENT
  Sex: Female
  Weight: 126.98 kg

DRUGS (21)
  1. RANITIDINE [Concomitant]
     Dosage: 150 MG, UNK
     Route: 048
  2. CETIRIZINE HCL [Concomitant]
     Dosage: 10 MG, UNK
  3. FLUTICASONE PROPIONATE [Concomitant]
     Dosage: 50 MCG/24HR, UNK
  4. OXYCODONE HCL AND ACETAMINOPHEN [Concomitant]
     Dosage: 325 MG, UNK
  5. PRILOSEC [Concomitant]
  6. YASMIN [Suspect]
     Indication: PRODUCT USED FOR UNKNOWN INDICATION
     Dosage: UNK
     Dates: start: 20060721, end: 20070714
  7. VALTREX [Concomitant]
     Indication: HERPES VIRUS INFECTION
     Dosage: 1 MG, UNK
     Dates: start: 20071212
  8. GABAPENTIN [Concomitant]
     Indication: EPILEPSY
     Dosage: 600 MG, UNK
     Dates: start: 20071205
  9. LORATADINE [Concomitant]
     Dosage: 10 MG, UNK
  10. EFFEXOR [Concomitant]
     Indication: DEPRESSION
     Dosage: 150 MG, UNK
     Dates: start: 20071226
  11. ACTOS [Concomitant]
     Dosage: 45 MG, UNK
     Route: 048
  12. NEURONTIN [Concomitant]
     Dosage: 300 MG, UNK
  13. ALBUTEROL [Concomitant]
  14. HYDROCHLOROTHIAZIDE [Concomitant]
     Dosage: 12.5 MG, UNK
  15. FERROUS GLUCONATE [Concomitant]
     Dosage: 28 MG, UNK
  16. CYCLOBENZAPRINE [Concomitant]
     Indication: MUSCLE RELAXANT THERAPY
     Dosage: 10 MG, UNK
     Dates: start: 20071205
  17. MORPHINE [Concomitant]
     Indication: PAIN
     Dosage: 30 MG, UNK
     Dates: start: 20071205
  18. MIRALAX [Concomitant]
     Indication: CONSTIPATION
  19. GLUMETZA [Concomitant]
     Indication: DIABETES MELLITUS
     Dosage: 500 MG, UNK
     Dates: start: 20071213
  20. CLONAZEPAM [Concomitant]
     Dosage: 0.5 MG, UNK
  21. ELIDEL [Concomitant]

REACTIONS (8)
  - GALLBLADDER CHOLESTEROLOSIS [None]
  - DYSPEPSIA [None]
  - CHOLECYSTECTOMY [None]
  - ABDOMINAL DISTENSION [None]
  - CHOLECYSTITIS ACUTE [None]
  - CHOLELITHIASIS [None]
  - DIARRHOEA [None]
  - BILIARY FIBROSIS [None]
